FAERS Safety Report 7959862 (Version 2)
Quarter: 2016Q2

REPORT INFORMATION
  Report Type: Spontaneous
  Country: US (occurrence: US)
  Receive Date: 20110525
  Receipt Date: 20160601
  Transmission Date: 20160815
  Serious: No
  Sender: FDA-Public Use
  Company Number: US-NOVEN-ALL1-2010-04341

PATIENT
  Sex: Female
  Weight: 81.63 kg

DRUGS (2)
  1. DAYTRANA [Suspect]
     Active Substance: METHYLPHENIDATE
     Dosage: 30 MG, 1X/DAY:QD
     Route: 062
     Dates: start: 20100817, end: 201510
  2. DAYTRANA [Suspect]
     Active Substance: METHYLPHENIDATE
     Indication: NARCOLEPSY
     Dosage: 30 MG, 1X/DAY:QD
     Route: 062
     Dates: start: 2009, end: 2010

REACTIONS (5)
  - Application site pruritus [Not Recovered/Not Resolved]
  - Drug dose omission [Not Recovered/Not Resolved]
  - Off label use [Not Recovered/Not Resolved]
  - Product quality issue [Unknown]
  - Application site urticaria [Recovered/Resolved]

NARRATIVE: CASE EVENT DATE: 2009
